FAERS Safety Report 6765374-5 (Version None)
Quarter: 2010Q2

REPORT INFORMATION
  Report Type: 
  Country: None (occurrence: None)
  Receive Date: 20100611
  Receipt Date: 20100604
  Transmission Date: 20101027
  Serious: Yes (Hospitalization)
  Sender: FDA-Public Use
  Company Number: FR-JNJFOC-20100602010

PATIENT
  Age: 46 Year
  Sex: Female

DRUGS (1)
  1. TAVANIC [Suspect]
     Indication: LUNG DISORDER
     Route: 065

REACTIONS (1)
  - PNEUMOTHORAX [None]
